FAERS Safety Report 15834177 (Version 5)
Quarter: 2025Q2

REPORT INFORMATION
  Report Type: Report from Study
  Country: CA (occurrence: CA)
  Receive Date: 20190116
  Receipt Date: 20250625
  Transmission Date: 20250717
  Serious: Yes (Hospitalization, Other)
  Sender: TAKEDA
  Company Number: CA-TAKEDA-2018TUS019090

PATIENT
  Age: 67 Year
  Sex: Male

DRUGS (34)
  1. VEDOLIZUMAB [Suspect]
     Active Substance: VEDOLIZUMAB
     Indication: Colitis ulcerative
  2. VEDOLIZUMAB [Suspect]
     Active Substance: VEDOLIZUMAB
     Dosage: 300 MILLIGRAM, Q6WEEKS
     Dates: start: 20171220
  3. VEDOLIZUMAB [Suspect]
     Active Substance: VEDOLIZUMAB
     Dosage: 300 MILLIGRAM, Q6WEEKS
  4. VEDOLIZUMAB [Suspect]
     Active Substance: VEDOLIZUMAB
     Dosage: 300 MILLIGRAM, Q6WEEKS
  5. VEDOLIZUMAB [Suspect]
     Active Substance: VEDOLIZUMAB
     Dosage: 300 MILLIGRAM, Q4WEEKS
     Dates: start: 20190319
  6. VEDOLIZUMAB [Suspect]
     Active Substance: VEDOLIZUMAB
     Dosage: 300 MILLIGRAM, Q4WEEKS
  7. VEDOLIZUMAB [Suspect]
     Active Substance: VEDOLIZUMAB
     Dosage: 300 MILLIGRAM, Q4WEEKS
  8. VITAMIN D NOS [Concomitant]
     Active Substance: CHOLECALCIFEROL\ERGOCALCIFEROL
  9. HALIBUT LIVER OIL [Concomitant]
     Active Substance: HALIBUT LIVER OIL
  10. JANUVIA [Concomitant]
     Active Substance: SITAGLIPTIN PHOSPHATE
     Dosage: 100 MILLIGRAM, QD
  11. ASPIRIN [Concomitant]
     Active Substance: ASPIRIN
  12. LIPITOR [Concomitant]
     Active Substance: ATORVASTATIN CALCIUM
  13. OLMESARTAN MEDOXOMIL [Concomitant]
     Active Substance: OLMESARTAN MEDOXOMIL
  14. NOVORAPID [Concomitant]
     Active Substance: INSULIN ASPART
  15. LEVEMIR [Concomitant]
     Active Substance: INSULIN DETEMIR
     Dosage: UNK, BID
  16. Salofalk [Concomitant]
  17. PREDNISONE [Concomitant]
     Active Substance: PREDNISONE
  18. CLOPIDOGREL [Concomitant]
     Active Substance: CLOPIDOGREL BISULFATE
  19. FUROSEMIDE [Concomitant]
     Active Substance: FUROSEMIDE
  20. TRESIBA [Concomitant]
     Active Substance: INSULIN DEGLUDEC
  21. OLMESARTAN [Concomitant]
     Active Substance: OLMESARTAN
  22. SILDENAFIL [Concomitant]
     Active Substance: SILDENAFIL
  23. ATORVASTATIN CALCIUM [Concomitant]
     Active Substance: ATORVASTATIN CALCIUM
  24. OZEMPIC [Concomitant]
     Active Substance: SEMAGLUTIDE
  25. NITROGLYCERIN [Concomitant]
     Active Substance: NITROGLYCERIN
     Route: 061
  26. BETAHISTINE [Concomitant]
     Active Substance: BETAHISTINE
  27. JARDIANCE [Concomitant]
     Active Substance: EMPAGLIFLOZIN
  28. DOXYCYCLINE [Concomitant]
     Active Substance: DOXYCYCLINE
  29. TAMSULOSIN [Concomitant]
     Active Substance: TAMSULOSIN
  30. OFEV [Concomitant]
     Active Substance: NINTEDANIB
  31. PANTOPRAZOLE [Concomitant]
     Active Substance: PANTOPRAZOLE
  32. TRESIBA [Concomitant]
     Active Substance: INSULIN DEGLUDEC
  33. VENTOLIN [Concomitant]
     Active Substance: ALBUTEROL SULFATE
  34. SPIRIVA [Concomitant]
     Active Substance: TIOTROPIUM BROMIDE MONOHYDRATE

REACTIONS (7)
  - Pericardial effusion [Unknown]
  - Pneumonia [Unknown]
  - Meniere^s disease [Unknown]
  - Interstitial lung disease [Recovered/Resolved]
  - Dizziness [Not Recovered/Not Resolved]
  - Blood pressure decreased [Unknown]
  - Asbestosis [Unknown]

NARRATIVE: CASE EVENT DATE: 20201217
